FAERS Safety Report 22285736 (Version 1)
Quarter: 2023Q2

REPORT INFORMATION
  Report Type: Report from Study
  Country: CA (occurrence: CA)
  Receive Date: 20230504
  Receipt Date: 20230504
  Transmission Date: 20230721
  Serious: Yes (Other)
  Sender: FDA-Public Use
  Company Number: CA-ABBVIE-4747319

PATIENT
  Sex: Female

DRUGS (1)
  1. SKYRIZI [Suspect]
     Active Substance: RISANKIZUMAB-RZAA
     Indication: Crohn^s disease
     Dosage: DRUG START DATE: 17 JAN 2023
     Route: 058

REACTIONS (11)
  - Intestinal resection [Unknown]
  - Vaginal infection [Unknown]
  - Vulvovaginal dryness [Unknown]
  - Rectal haemorrhage [Unknown]
  - Proctalgia [Unknown]
  - Vulvovaginal discomfort [Unknown]
  - Vulvovaginal pruritus [Unknown]
  - Vaginal discharge [Unknown]
  - Urinary tract disorder [Unknown]
  - Discomfort [Unknown]
  - Procedural pain [Unknown]

NARRATIVE: CASE EVENT DATE: 20230101
